FAERS Safety Report 5886623-1 (Version None)
Quarter: 2008Q3

REPORT INFORMATION
  Report Type: 
  Country: None (occurrence: None)
  Receive Date: 20080917
  Receipt Date: 20080908
  Transmission Date: 20090109
  Serious: Yes (Other)
  Sender: FDA-Public Use
  Company Number: PHBS2008US05671

PATIENT
  Age: 63 Year
  Sex: Female

DRUGS (1)
  1. PAMIDRONATE DISODIUM [Suspect]
     Dosage: UNK

REACTIONS (10)
  - BONE DISORDER [None]
  - FISTULA [None]
  - HYPOAESTHESIA [None]
  - JAW FRACTURE [None]
  - MASTICATION DISORDER [None]
  - ORAL SURGERY [None]
  - OSTEONECROSIS [None]
  - PAIN IN JAW [None]
  - RESORPTION BONE INCREASED [None]
  - TOOTH EXTRACTION [None]
